FAERS Safety Report 19866801 (Version 1)
Quarter: 2021Q3

REPORT INFORMATION
  Report Type: Spontaneous
  Country: ES (occurrence: ES)
  Receive Date: 20210922
  Receipt Date: 20210922
  Transmission Date: 20211014
  Serious: Yes (Other)
  Sender: FDA-Public Use
  Company Number: ES-AUROBINDO-AUR-APL-2021-039423

PATIENT
  Age: 5 Year
  Sex: Male

DRUGS (4)
  1. ESMOLOL HYDROCHLORIDE. [Suspect]
     Active Substance: ESMOLOL HYDROCHLORIDE
     Indication: PRODUCT USED FOR UNKNOWN INDICATION
     Dosage: 2086 MILLIGRAM, ONCE A DAY
     Route: 041
     Dates: start: 20210518, end: 20210620
  2. VALGANCICLOVIR. [Suspect]
     Active Substance: VALGANCICLOVIR
     Indication: PRODUCT USED FOR UNKNOWN INDICATION
     Dosage: 280 MILLIGRAM, ONCE A DAY
     Route: 048
     Dates: start: 20210331, end: 20210602
  3. GANCICLOVIR. [Suspect]
     Active Substance: GANCICLOVIR
     Indication: PRODUCT USED FOR UNKNOWN INDICATION
     Dosage: 55 MILLIGRAM, TWO TIMES A DAY
     Route: 042
     Dates: start: 20210602, end: 20210630
  4. HYDRALAZINE HYDROCHLORIDE. [Suspect]
     Active Substance: HYDRALAZINE HYDROCHLORIDE
     Indication: PRODUCT USED FOR UNKNOWN INDICATION
     Dosage: 13.5 MILLIGRAM, 1 TOTAL
     Route: 042
     Dates: start: 20210526, end: 20210613

REACTIONS (2)
  - Hepatotoxicity [Recovered/Resolved]
  - Hyperbilirubinaemia [Recovered/Resolved]

NARRATIVE: CASE EVENT DATE: 20210610
